FAERS Safety Report 7435029-2 (Version None)
Quarter: 2011Q2

REPORT INFORMATION
  Report Type: 
  Country: None (occurrence: None)
  Receive Date: 20110415
  Receipt Date: 20110408
  Transmission Date: 20111010
  Serious: Yes (Death)
  Sender: FDA-Public Use
  Company Number: DSA_45020_2011

PATIENT
  Sex: Female

DRUGS (2)
  1. XENAZINE [Suspect]
     Indication: HUNTINGTON'S DISEASE
     Dosage: 12.5 MG BID ORAL; 12.5 MG BID ORAL
     Route: 048
  2. MIRAPEX [Concomitant]

REACTIONS (1)
  - PNEUMONIA ASPIRATION [None]
